FAERS Safety Report 7619811-4 (Version None)
Quarter: 2011Q3

REPORT INFORMATION
  Report Type: 
  Country: None (occurrence: None)
  Receive Date: 20110719
  Receipt Date: 20110711
  Transmission Date: 20111222
  Serious: Yes (Other)
  Sender: FDA-Public Use
  Company Number: GB-AMGEN-GBRSP2011035765

PATIENT
  Age: 45 Year

DRUGS (1)
  1. ENBREL [Suspect]
     Indication: RHEUMATOID ARTHRITIS
     Dosage: 50 MG, WEEKLY
     Dates: start: 20070801

REACTIONS (3)
  - NEPHROLITHIASIS [None]
  - HAEMATURIA [None]
  - RENAL COLIC [None]
